FAERS Safety Report 6028232-X (Version None)
Quarter: 2008Q4

REPORT INFORMATION
  Report Type: 
  Country: None (occurrence: None)
  Receive Date: 20081231
  Receipt Date: 20081231
  Transmission Date: 20090506
  Serious: Yes (Hospitalization)
  Sender: FDA-Public Use
  Company Number: None

PATIENT
  Age: 42 Year
  Sex: Female

DRUGS (1)
  1. PROCHLORPERAZINE [Suspect]
     Indication: DIARRHOEA
     Dosage: 20 MG TID PO
     Route: 048
     Dates: start: 20080613, end: 20080614

REACTIONS (3)
  - DYSPNOEA [None]
  - RESPIRATORY DEPRESSION [None]
  - SWOLLEN TONGUE [None]
